FAERS Safety Report 5132373-9 (Version None)
Quarter: 2006Q4

REPORT INFORMATION
  Report Type: 
  Country: None (occurrence: None)
  Receive Date: 20061019
  Receipt Date: 20061019
  Transmission Date: 20070319
  Serious: Yes (Other)
  Sender: FDA-Public Use
  Company Number: None

PATIENT
  Sex: Female
  Weight: 78.9259 kg

DRUGS (3)
  1. ENBREL [Suspect]
     Indication: SERONEGATIVE ARTHRITIS
     Dosage: 50 MG ONCE / WK SQ
     Route: 058
     Dates: start: 20060703, end: 20060910
  2. COUMADIN [Concomitant]
  3. AZULFADINE [Concomitant]

REACTIONS (1)
  - UTERINE CANCER [None]
